FAERS Safety Report 6186064-6 (Version None)
Quarter: 2009Q2

REPORT INFORMATION
  Report Type: 
  Country: None (occurrence: None)
  Receive Date: 20090507
  Receipt Date: 20090507
  Transmission Date: 20091009
  Serious: No
  Sender: FDA-Public Use
  Company Number: None

PATIENT
  Age: 58 Year
  Sex: Female

DRUGS (1)
  1. PHENYTOIN [Suspect]
     Dosage: 3 CAPSULES ON ODD DAYS 4 ON EVEN DAYS

REACTIONS (3)
  - HALLUCINATION [None]
  - PRODUCT SUBSTITUTION ISSUE [None]
  - PRURITUS GENERALISED [None]
